FAERS Safety Report 23108513 (Version 1)
Quarter: 2023Q4

REPORT INFORMATION
  Report Type: Spontaneous
  Country: NL (occurrence: NL)
  Receive Date: 20231026
  Receipt Date: 20231026
  Transmission Date: 20240110
  Serious: Yes (Other)
  Sender: FDA-Public Use
  Company Number: NL-HIKMA PHARMACEUTICALS-NL-H14001-23-66114

PATIENT
  Age: 68 Year
  Sex: Female

DRUGS (2)
  1. CEFUROXIME [Suspect]
     Active Substance: CEFUROXIME
     Indication: Intervertebral discitis
     Dosage: 500 MILLIGRAM, TID
     Route: 065
  2. MEROPENEM [Suspect]
     Active Substance: MEROPENEM
     Indication: Intervertebral discitis
     Dosage: 1000 MILLIGRAM, 3 DD
     Route: 065

REACTIONS (2)
  - Pathogen resistance [Unknown]
  - Disease progression [Unknown]
